FAERS Safety Report 4850154-8 (Version None)
Quarter: 2005Q4

REPORT INFORMATION
  Report Type: 
  Country: None (occurrence: None)
  Receive Date: 20051123
  Receipt Date: 20050711
  Transmission Date: 20060501
  Serious: Yes (Hospitalization)
  Sender: FDA-Public Use
  Company Number: 2005099009

PATIENT
  Age: 68 Year
  Sex: Female

DRUGS (7)
  1. LIPITOR [Suspect]
     Indication: HYPERLIPIDAEMIA
  2. ASPIRIN [Concomitant]
  3. LOPRESSOR [Concomitant]
  4. LEVOXYL [Concomitant]
  5. ZOLOFT [Concomitant]
  6. SERAX [Concomitant]
  7. ZANTAC [Concomitant]

REACTIONS (1)
  - HEPATIC ENZYME INCREASED [None]
